FAERS Safety Report 9079994 (Version 1)
Quarter: 2013Q1

REPORT INFORMATION
  Report Type: Spontaneous
  Country: ES (occurrence: ES)
  Receive Date: 20130130
  Receipt Date: 20130130
  Transmission Date: 20140127
  Serious: Yes (Other)
  Sender: FDA-Public Use
  Company Number: ES-TEVA-382416ISR

PATIENT
  Sex: Male

DRUGS (7)
  1. FLUDARABINE [Suspect]
     Indication: CHRONIC LYMPHOCYTIC LEUKAEMIA
     Dosage: FOR 5 DAYS
     Route: 048
  2. FLUDARABINE [Suspect]
     Indication: CHRONIC LYMPHOCYTIC LEUKAEMIA
     Route: 065
  3. COTRIMOXAZOLE [Concomitant]
     Indication: PROPHYLAXIS
     Route: 065
  4. FILGRASTIM [Concomitant]
  5. PEGFILGRASTIM [Concomitant]
  6. ANTIBACTERIAL [Concomitant]
     Indication: PROPHYLAXIS
  7. ANTIVIRAL [Concomitant]
     Indication: PROPHYLAXIS

REACTIONS (2)
  - Neuroendocrine carcinoma of the skin [Unknown]
  - Metastases to liver [Unknown]
